FAERS Safety Report 5097460-2 (Version None)
Quarter: 2006Q3

REPORT INFORMATION
  Report Type: 
  Country: None (occurrence: None)
  Receive Date: 20060901
  Receipt Date: 20060823
  Transmission Date: 20061208
  Serious: Yes (Other)
  Sender: FDA-Public Use
  Company Number: 2006103230

PATIENT
  Age: 76 Year
  Sex: Male
  Weight: 72.5755 kg

DRUGS (2)
  1. CADUET [Suspect]
     Indication: HYPERTENSION
     Dates: start: 20060601, end: 20060701
  2. LIPITOR [Concomitant]

REACTIONS (5)
  - FALL [None]
  - HEPATIC ENZYME INCREASED [None]
  - LIVER DISORDER [None]
  - MOVEMENT DISORDER [None]
  - MUSCLE SPASMS [None]
